FAERS Safety Report 11166995 (Version 1)
Quarter: 2015Q2

REPORT INFORMATION
  Report Type: Spontaneous
  Country: US (occurrence: US)
  Receive Date: 20150605
  Receipt Date: 20150605
  Transmission Date: 20150821
  Serious: No
  Sender: FDA-Public Use
  Company Number: US-009507513-1505USA012052

PATIENT
  Sex: Male

DRUGS (1)
  1. SALICYLIC ACID (+) ALOE VERA [Suspect]
     Active Substance: ALOE VERA LEAF\SALICYLIC ACID
     Indication: PRODUCT USED FOR UNKNOWN INDICATION
     Dosage: UNK

REACTIONS (2)
  - Skin papilloma [Unknown]
  - Skin discolouration [Unknown]
